FAERS Safety Report 17903930 (Version 1)
Quarter: 2020Q2

REPORT INFORMATION
  Report Type: Spontaneous
  Country: US (occurrence: US)
  Receive Date: 20200616
  Receipt Date: 20200616
  Transmission Date: 20200714
  Serious: Yes (Death, Hospitalization)
  Sender: FDA-Public Use
  Company Number: None

PATIENT
  Sex: Female
  Weight: 84.8 kg

DRUGS (3)
  1. DOXORUBICIN HYDROCHLORIDE. [Suspect]
     Active Substance: DOXORUBICIN HYDROCHLORIDE
     Dates: end: 20200414
  2. CYCLOPHOSPHAMIDE. [Suspect]
     Active Substance: CYCLOPHOSPHAMIDE
     Dates: end: 20200414
  3. TAXOL [Suspect]
     Active Substance: PACLITAXEL
     Dates: end: 20200602

REACTIONS (11)
  - Normocytic anaemia [None]
  - Back pain [None]
  - Malaise [None]
  - Blood bilirubin increased [None]
  - Respiration abnormal [None]
  - Pulseless electrical activity [None]
  - Pulmonary embolism [None]
  - Fatigue [None]
  - Unresponsive to stimuli [None]
  - Neuropathy peripheral [None]
  - Gastrooesophageal reflux disease [None]

NARRATIVE: CASE EVENT DATE: 20200606
